FAERS Safety Report 16296226 (Version 1)
Quarter: 2019Q2

REPORT INFORMATION
  Report Type: Spontaneous
  Country: US (occurrence: US)
  Receive Date: 20190509
  Receipt Date: 20190509
  Transmission Date: 20190711
  Serious: No
  Sender: FDA-Public Use
  Company Number: None

PATIENT
  Age: 48 Year
  Sex: Female
  Weight: 125.1 kg

DRUGS (1)
  1. AIMOVIG [Suspect]
     Active Substance: ERENUMAB-AOOE
     Indication: MIGRAINE
     Dosage: ?          OTHER FREQUENCY:MONTHLY;?
     Route: 030
     Dates: start: 20190430

REACTIONS (6)
  - Myalgia [None]
  - Feeding disorder [None]
  - Fatigue [None]
  - Asthenia [None]
  - Abdominal pain upper [None]
  - Movement disorder [None]

NARRATIVE: CASE EVENT DATE: 20190430
